FAERS Safety Report 4449409-0 (Version None)
Quarter: 2004Q3

REPORT INFORMATION
  Report Type: 
  Country: None (occurrence: None)
  Receive Date: 20040909
  Receipt Date: 20040823
  Transmission Date: 20050211
  Serious: Yes (Death)
  Sender: FDA-Public Use
  Company Number: B0343701A

PATIENT
  Age: 50 Year
  Sex: Female

DRUGS (3)
  1. RETROVIR [Suspect]
     Indication: HIV INFECTION
     Dosage: ORAL
     Route: 048
  2. DIDANOSINE (FORMULATION UNKNOWN) (DIDANOSINE) [Concomitant]
     Indication: HIV INFECTION
     Dosage: ORAL
     Route: 048
  3. EFAVIRENZ CAPSULE (EFAVIRENZ) [Suspect]
     Indication: HIV INFECTION
     Dosage: ORAL
     Route: 048

REACTIONS (4)
  - ASCITES [None]
  - DISEASE PROGRESSION [None]
  - HEPATIC ENCEPHALOPATHY [None]
  - HEPATIC FAILURE [None]
